FAERS Safety Report 4705733-5 (Version None)
Quarter: 2005Q2

REPORT INFORMATION
  Report Type: 
  Country: None (occurrence: None)
  Receive Date: 20050629
  Receipt Date: 20050617
  Transmission Date: 20051028
  Serious: Yes (Other)
  Sender: FDA-Public Use
  Company Number: 2005-BP-10574RO

PATIENT
  Age: 47 Year
  Sex: Male

DRUGS (2)
  1. DIAZEPAM [Suspect]
     Indication: ANXIETY
     Dosage: 10 TO 50 MG/DAY (SEE TEXT), PO
     Route: 048
  2. BACTRIM [Concomitant]

REACTIONS (5)
  - AGGRESSION [None]
  - GYNAECOMASTIA [None]
  - NERVOUSNESS [None]
  - SELF-MEDICATION [None]
  - WEIGHT INCREASED [None]
